FAERS Safety Report 9974917 (Version 1)
Quarter: 2014Q1

REPORT INFORMATION
  Report Type: Report from Study
  Country: US (occurrence: US)
  Receive Date: 20140306
  Receipt Date: 20140306
  Transmission Date: 20141002
  Serious: No
  Sender: FDA-Public Use
  Company Number: US-ABBVIE-13P-163-1159924-00

PATIENT
  Sex: Male

DRUGS (5)
  1. HUMIRA [Suspect]
     Indication: ANKYLOSING SPONDYLITIS
  2. PREDNISONE [Concomitant]
     Indication: PRODUCT USED FOR UNKNOWN INDICATION
     Dosage: 10 MG DAILY, TAPER WITH CURRENT DOSE
  3. LEVOTHYROID [Concomitant]
     Indication: HYPOTHYROIDISM
     Dosage: 0.5 MCG DAILY
  4. PREVACID [Concomitant]
     Indication: GASTRIC DISORDER
     Dosage: 20 MG DAILY
  5. HCTZ [Concomitant]
     Indication: HYPERTENSION

REACTIONS (1)
  - Ankylosing spondylitis [Not Recovered/Not Resolved]
